FAERS Safety Report 9066703 (Version 1)
Quarter: 2013Q1

REPORT INFORMATION
  Report Type: Spontaneous
  Country: US (occurrence: US)
  Receive Date: 20130131
  Receipt Date: 20130131
  Transmission Date: 20140127
  Serious: Yes (Other)
  Sender: FDA-Public Use
  Company Number: US-ABBOTT-12P-163-1007785-00

PATIENT
  Age: 45 None
  Sex: Male
  Weight: 103.51 kg

DRUGS (11)
  1. HUMIRA [Suspect]
     Indication: PSORIASIS
     Dates: start: 201206
  2. REBIF [Concomitant]
     Indication: MULTIPLE SCLEROSIS
  3. NEXIUM [Concomitant]
     Indication: PRODUCT USED FOR UNKNOWN INDICATION
  4. BABY ASA [Concomitant]
     Indication: PRODUCT USED FOR UNKNOWN INDICATION
  5. RELPAX [Concomitant]
     Indication: PRODUCT USED FOR UNKNOWN INDICATION
  6. ROXEREM [Concomitant]
     Indication: SLEEP DISORDER
  7. SORIATANE [Concomitant]
     Indication: PRODUCT USED FOR UNKNOWN INDICATION
  8. SIMVASTATIN [Concomitant]
     Indication: PRODUCT USED FOR UNKNOWN INDICATION
  9. PERCOCET [Concomitant]
     Indication: PRODUCT USED FOR UNKNOWN INDICATION
  10. CALCIPOTRIENE [Concomitant]
     Indication: PRODUCT USED FOR UNKNOWN INDICATION
     Route: 061
  11. MULTIVITAMIN [Concomitant]
     Indication: PRODUCT USED FOR UNKNOWN INDICATION

REACTIONS (5)
  - Diarrhoea infectious [Unknown]
  - Diarrhoea infectious [Recovering/Resolving]
  - Diarrhoea infectious [Recovered/Resolved]
  - Diarrhoea infectious [Unknown]
  - Enterocolitis infectious [Unknown]
